FAERS Safety Report 8243953-6 (Version None)
Quarter: 2012Q1

REPORT INFORMATION
  Report Type: 
  Country: None (occurrence: None)
  Receive Date: 20120329
  Receipt Date: 20111003
  Transmission Date: 20120608
  Serious: No
  Sender: FDA-Public Use
  Company Number: US-MYLANLABS-2011S1019292

PATIENT
  Age: 50 Year
  Sex: Female

DRUGS (4)
  1. ESTRADIOL [Suspect]
     Indication: HORMONE REPLACEMENT THERAPY
     Dosage: BIW
     Route: 062
     Dates: start: 20110825
  2. LIPITOR [Concomitant]
  3. BENADRYL [Concomitant]
  4. ZYRTEC [Concomitant]

REACTIONS (1)
  - APPLICATION SITE PRURITUS [None]
